FAERS Safety Report 13551775 (Version 1)
Quarter: 2017Q2

REPORT INFORMATION
  Report Type: Report from Study
  Country: AT (occurrence: AT)
  Receive Date: 20170516
  Receipt Date: 20170516
  Transmission Date: 20170830
  Serious: Yes (Other)
  Sender: FDA-Public Use
  Company Number: AT-UNICHEM LABORATORIES LIMITED-UCM201705-000116

PATIENT
  Age: 2 Year

DRUGS (1)
  1. DIVALPROEX SODIUM. [Suspect]
     Active Substance: DIVALPROEX SODIUM

REACTIONS (3)
  - Somnolence [Unknown]
  - Overdose [Unknown]
  - Seizure [Unknown]
